FAERS Safety Report 6898413-1 (Version None)
Quarter: 2010Q3

REPORT INFORMATION
  Report Type: 
  Country: None (occurrence: None)
  Receive Date: 20100729
  Receipt Date: 20100719
  Transmission Date: 20110219
  Serious: Yes (Other)
  Sender: FDA-Public Use
  Company Number: KV201000234

PATIENT
  Sex: Female

DRUGS (1)
  1. MORPHINE SULFATE [Suspect]
     Indication: PRODUCT USED FOR UNKNOWN INDICATION
     Dosage: ORAL
     Route: 048
     Dates: start: 20081003

REACTIONS (5)
  - CARDIAC FAILURE CONGESTIVE [None]
  - COLITIS ISCHAEMIC [None]
  - DEAFNESS UNILATERAL [None]
  - ISCHAEMIA [None]
  - RENAL FAILURE ACUTE [None]
